FAERS Safety Report 7360224-0 (Version None)
Quarter: 2011Q1

REPORT INFORMATION
  Report Type: 
  Country: None (occurrence: None)
  Receive Date: 20110307
  Receipt Date: 20110215
  Transmission Date: 20110831
  Serious: Yes (Other)
  Sender: FDA-Public Use
  Company Number: 2011BI007690

PATIENT
  Age: 39 Year
  Sex: Female
  Weight: 52 kg

DRUGS (29)
  1. ZEVALIN [Suspect]
     Indication: FOLLICLE CENTRE LYMPHOMA, FOLLICULAR GRADE I, II, III STAGE III
     Dosage: 767 MBQ; 1X; IV
     Route: 042
     Dates: start: 20100406, end: 20100413
  2. ZEVALIN [Suspect]
     Indication: B-CELL LYMPHOMA
     Dosage: 767 MBQ; 1X; IV
     Route: 042
     Dates: start: 20100406, end: 20100413
  3. UNCODEABLE ^UNCLASSIFIABLE^ [Concomitant]
  4. DIFLUCAN [Concomitant]
  5. BAYASPRIN [Concomitant]
  6. NEORAL [Concomitant]
  7. MORPHINE [Concomitant]
  8. RENIVACE [Concomitant]
  9. SEISHOKU [Concomitant]
  10. ALKERAN [Concomitant]
  11. LASIX [Concomitant]
  12. ALDACTONE [Concomitant]
  13. SANDIMMUNE [Concomitant]
  14. R-CHOP [Concomitant]
  15. RITUXIMAB [Concomitant]
  16. NEUTROGIN [Concomitant]
  17. LOPEMIN [Concomitant]
  18. ARTIST [Concomitant]
  19. CRAVIT [Concomitant]
  20. FINIBAX [Concomitant]
  21. MAXIPIME [Concomitant]
  22. FUNGUARD [Concomitant]
  23. POLARAMINE [Concomitant]
  24. CALONAL [Concomitant]
  25. ACYCLOVIR [Concomitant]
  26. GLUCOSE [Concomitant]
  27. KYTRIL [Concomitant]
  28. MEROPEN [Concomitant]
  29. FLUDARA [Concomitant]

REACTIONS (4)
  - PROTEIN TOTAL DECREASED [None]
  - WHITE BLOOD CELL COUNT DECREASED [None]
  - ANAEMIA [None]
  - PLATELET COUNT DECREASED [None]
